FAERS Safety Report 9221861 (Version 3)
Quarter: 2014Q1

REPORT INFORMATION
  Report Type: Spontaneous
  Country: US (occurrence: US)
  Receive Date: 20130410
  Receipt Date: 20140306
  Transmission Date: 20141002
  Serious: Yes (Hospitalization, Other)
  Sender: FDA-Public Use
  Company Number: US-BAYER-2013-042390

PATIENT
  Age: 33 Year
  Sex: Female
  Weight: 68.03 kg

DRUGS (2)
  1. MIRENA [Suspect]
     Indication: CONTRACEPTION
     Dosage: 20 MCG/24HR, CONT
     Route: 015
     Dates: start: 20090219, end: 20110411
  2. METOPROLOL [Concomitant]
     Indication: BLOOD PRESSURE MANAGEMENT
     Dosage: UNK
     Dates: start: 2003

REACTIONS (12)
  - Uterine perforation [None]
  - Dyspepsia [None]
  - Injury [None]
  - Pain [None]
  - Emotional distress [None]
  - Psychological trauma [None]
  - Anxiety [None]
  - Depression [None]
  - Pregnancy with contraceptive device [None]
  - Drug ineffective [None]
  - Abortion spontaneous [None]
  - Device dislocation [None]
